FAERS Safety Report 26000830 (Version 2)
Quarter: 2025Q4

REPORT INFORMATION
  Report Type: Spontaneous
  Country: PR (occurrence: PR)
  Receive Date: 20251105
  Receipt Date: 20251217
  Transmission Date: 20260117
  Serious: No
  Sender: ANI
  Company Number: PR-ANIPHARMA-2025-PR-000087

PATIENT
  Age: 58 Year
  Sex: Female
  Weight: 114.76 kg

DRUGS (10)
  1. CORTICOTROPIN [Suspect]
     Active Substance: CORTICOTROPIN
     Indication: Pulmonary sarcoidosis
     Dosage: 40 UNITS TWICE WEEKLY
     Route: 058
     Dates: start: 20250902
  2. UNSPECIFIED INGREDIENT [Concomitant]
     Active Substance: UNSPECIFIED INGREDIENT
  3. LATISSE [Concomitant]
     Active Substance: BIMATOPROST
  4. PREDNISONE [Concomitant]
     Active Substance: PREDNISONE
  5. SINGULAIR [Concomitant]
     Active Substance: MONTELUKAST SODIUM
  6. TIMOLOL [Concomitant]
     Active Substance: TIMOLOL
  7. TAMSULOSIN [Concomitant]
     Active Substance: TAMSULOSIN
  8. omega [Concomitant]
  9. VITAMINS [Concomitant]
     Active Substance: VITAMINS
  10. LOSARTAN [Concomitant]
     Active Substance: LOSARTAN

REACTIONS (6)
  - Headache [Recovered/Resolved]
  - Condition aggravated [Unknown]
  - Sarcoidosis [Unknown]
  - Fatigue [Unknown]
  - Intraocular pressure increased [Recovering/Resolving]
  - Oedema [Unknown]

NARRATIVE: CASE EVENT DATE: 20250902
